FAERS Safety Report 16490087 (Version 1)
Quarter: 2019Q2

REPORT INFORMATION
  Report Type: Spontaneous
  Country: TR (occurrence: TR)
  Receive Date: 20190628
  Receipt Date: 20190628
  Transmission Date: 20190711
  Serious: Yes (Other)
  Sender: FDA-Public Use
  Company Number: TR-SUN PHARMACEUTICAL INDUSTRIES LTD-2019RR-211893

PATIENT
  Age: 44 Year
  Sex: Female

DRUGS (6)
  1. METHYLPREDNISOLONE. [Suspect]
     Active Substance: METHYLPREDNISOLONE
     Dosage: AT 6 MONTHS, 8 MILLIGRAM, DAILY
     Route: 048
  2. AZATHIOPRINE. [Suspect]
     Active Substance: AZATHIOPRINE
     Indication: BEHCET^S SYNDROME
     Dosage: 100 MILLIGRAM, DAILY
     Route: 065
  3. PANTOPRAZOL [Suspect]
     Active Substance: PANTOPRAZOLE SODIUM
     Indication: BEHCET^S SYNDROME
     Dosage: 40 MILLIGRAM, DAILY
     Route: 065
  4. METHYLPREDNISOLONE. [Suspect]
     Active Substance: METHYLPREDNISOLONE
     Dosage: ON DAY 90, 16 MILLIGRAM, DAILY
     Route: 048
  5. METHYLPREDNISOLONE. [Suspect]
     Active Substance: METHYLPREDNISOLONE
     Dosage: ON DAY 20, 32 MILLIGRAM, DAILY
     Route: 048
  6. METHYLPREDNISOLONE. [Suspect]
     Active Substance: METHYLPREDNISOLONE
     Indication: BEHCET^S SYNDROME
     Dosage: 40 MILLIGRAM, DAILY
     Route: 048

REACTIONS (1)
  - Chorioretinopathy [Recovered/Resolved]
